FAERS Safety Report 7458887-4 (Version None)
Quarter: 2011Q2

REPORT INFORMATION
  Report Type: 
  Country: None (occurrence: None)
  Receive Date: 20110504
  Receipt Date: 20110425
  Transmission Date: 20111010
  Serious: Yes (Hospitalization)
  Sender: FDA-Public Use
  Company Number: US-BRISTOL-MYERS SQUIBB COMPANY-15135304

PATIENT
  Age: 43 Year
  Sex: Female

DRUGS (12)
  1. ABILIFY [Suspect]
     Indication: SCHIZOPHRENIA
     Dosage: 20MG,AT BED TIME
  2. LORATADINE [Concomitant]
  3. LISINOPRIL [Concomitant]
  4. SEROQUEL [Concomitant]
  5. GEODON [Concomitant]
  6. OMEPRAZOLE [Concomitant]
     Route: 048
  7. DESYREL [Concomitant]
     Dosage: BED TIME
  8. MULTI-VITAMIN [Concomitant]
     Dosage: 1DF= 1 TABLET
  9. HYDRODIURIL [Concomitant]
  10. FERROUS SULFATE TAB [Concomitant]
  11. ZYPREXA [Concomitant]
  12. ASPIRIN [Concomitant]

REACTIONS (8)
  - HEADACHE [None]
  - ASTHENIA [None]
  - MIGRAINE [None]
  - HALLUCINATIONS, MIXED [None]
  - DIZZINESS [None]
  - TREATMENT NONCOMPLIANCE [None]
  - FEELING ABNORMAL [None]
  - DELUSION [None]
